FAERS Safety Report 21044523 (Version 1)
Quarter: 2022Q3

REPORT INFORMATION
  Report Type: Spontaneous
  Country: US (occurrence: US)
  Receive Date: 20220705
  Receipt Date: 20220705
  Transmission Date: 20221027
  Serious: No
  Sender: FDA-Public Use
  Company Number: US-PADAGIS-21US031234

PATIENT

DRUGS (4)
  1. BISACODYL [Suspect]
     Active Substance: BISACODYL
     Indication: Constipation
     Dosage: 1 DF, SINGLE
     Route: 054
     Dates: start: 20211117, end: 20211117
  2. BISACODYL [Suspect]
     Active Substance: BISACODYL
     Dosage: 1 DF, PRN
     Route: 054
     Dates: end: 202001
  3. RITALIN [Concomitant]
     Active Substance: METHYLPHENIDATE HYDROCHLORIDE
     Indication: Narcolepsy
     Dosage: 100 MG, QID
     Route: 065
  4. GONADOTROPHIN, CHORIONIC [Concomitant]
     Active Substance: GONADOTROPHIN, CHORIONIC
     Indication: Narcolepsy
     Dosage: UNK
     Route: 065

REACTIONS (3)
  - Proctalgia [Not Recovered/Not Resolved]
  - Burning sensation [Not Recovered/Not Resolved]
  - Drug ineffective [Unknown]

NARRATIVE: CASE EVENT DATE: 20211117
